FAERS Safety Report 9235737 (Version 1)
Quarter: 2013Q1

REPORT INFORMATION
  Report Type: Spontaneous
  Country: US (occurrence: None)
  Receive Date: 20121031
  Receipt Date: 20121031
  Transmission Date: 20140127
  Serious: Yes (Other)
  Sender: FDA-Public Use
  Company Number: PHEH2011US013175

PATIENT
  Age: 56 Year
  Sex: Female

DRUGS (5)
  1. GILENYA [Suspect]
     Route: 048
  2. NEURONTIN (GABAPENTIN) [Concomitant]
  3. VALIUM (DIAZEPAM) [Concomitant]
  4. XANAX (ALPRAZOLAM) [Concomitant]
  5. AMANTADINE (AMANTADINE) [Concomitant]

REACTIONS (2)
  - Lower respiratory tract infection [None]
  - Libido decreased [None]
